FAERS Safety Report 25124363 (Version 1)
Quarter: 2025Q1

REPORT INFORMATION
  Report Type: Report from Study
  Country: US (occurrence: US)
  Receive Date: 20250326
  Receipt Date: 20250326
  Transmission Date: 20250408
  Serious: Yes (Other)
  Sender: ALEXION PHARMACEUTICALS
  Company Number: US-ASTRAZENECA-202503USA020265US

PATIENT

DRUGS (1)
  1. OLAPARIB [Suspect]
     Active Substance: OLAPARIB
     Indication: Genital neoplasm malignant female
     Dosage: 3 DOSAGE FORM, QD ( 2 TABLETS BY MOUTH IN THE MORNING AND TAKE 1 TABLET IN THE EVENING)

REACTIONS (11)
  - Pain [Unknown]
  - Constipation [Unknown]
  - Dyschezia [Unknown]
  - Oedema [Unknown]
  - Swelling [Unknown]
  - Palmar-plantar erythrodysaesthesia syndrome [Unknown]
  - Neuropathy peripheral [Unknown]
  - Hypoaesthesia [Unknown]
  - Paraesthesia [Unknown]
  - Limb discomfort [Unknown]
  - Skin disorder [Unknown]
